FAERS Safety Report 14646877 (Version 2)
Quarter: 2018Q3

REPORT INFORMATION
  Report Type: Spontaneous
  Country: FR (occurrence: FR)
  Receive Date: 20180316
  Receipt Date: 20180731
  Transmission Date: 20181010
  Serious: Yes (Disabling, Other)
  Sender: FDA-Public Use
  Company Number: FR-MERCK KGAA-2043897

PATIENT
  Age: 56 Year
  Sex: Female

DRUGS (2)
  1. NOVOTHYROX [Suspect]
     Active Substance: LEVOTHYROXINE SODIUM
     Indication: AUTOIMMUNE THYROIDITIS
     Route: 048
     Dates: start: 201707, end: 201709
  2. NOVOTHYROX [Suspect]
     Active Substance: LEVOTHYROXINE SODIUM

REACTIONS (16)
  - Memory impairment [Recovered/Resolved]
  - Hot flush [Recovered/Resolved]
  - Cognitive disorder [Recovering/Resolving]
  - Asthenia [Recovered/Resolved]
  - Disturbance in attention [Recovered/Resolved]
  - Fall [Recovered/Resolved]
  - Blood thyroid stimulating hormone increased [None]
  - Loss of consciousness [Recovered/Resolved]
  - Fatigue [Recovered/Resolved]
  - Nausea [Recovered/Resolved]
  - Language disorder [Recovered/Resolved]
  - Vertigo [Recovered/Resolved]
  - Speech disorder [None]
  - Dysstasia [Recovered/Resolved]
  - Migraine [Recovering/Resolving]
  - Malaise [Recovering/Resolving]

NARRATIVE: CASE EVENT DATE: 2017
